FAERS Safety Report 16517282 (Version 1)
Quarter: 2019Q3

REPORT INFORMATION
  Report Type: Spontaneous
  Country: US (occurrence: US)
  Receive Date: 20190702
  Receipt Date: 20190702
  Transmission Date: 20191004
  Serious: No
  Sender: FDA-Public Use
  Company Number: US-GALDERMA-US19001990

PATIENT
  Age: 29 Year
  Sex: Female

DRUGS (7)
  1. MUCINEX [Concomitant]
     Active Substance: GUAIFENESIN
     Indication: PRODUCT USED FOR UNKNOWN INDICATION
  2. PROACTIV MD DAILY OIL CONTROL SPF 30 [Suspect]
     Active Substance: AVOBENZONE\OCTISALATE\OCTOCRYLENE
     Indication: ACNE
     Route: 061
     Dates: start: 20181223, end: 20190101
  3. PROACTIV GREEN TEA MOISTURIZER [Concomitant]
     Active Substance: COSMETICS
     Indication: ACNE
     Route: 061
     Dates: start: 20181223, end: 20190101
  4. SUDAFED [Concomitant]
     Active Substance: PSEUDOEPHEDRINE HYDROCHLORIDE
     Indication: PRODUCT USED FOR UNKNOWN INDICATION
  5. PROACTIV MD ADAPALENE ACNE TREATMENT [Suspect]
     Active Substance: ADAPALENE
     Dosage: 0.1%
     Route: 061
     Dates: start: 20181223, end: 20190101
  6. PROACTIV MD ADAPALENE ACNE TREATMENT [Suspect]
     Active Substance: ADAPALENE
     Indication: ACNE
     Dosage: 0.1%
     Route: 061
     Dates: start: 20181223, end: 20190101
  7. PROACTIV MD DEEP CLEANSING FACE WASH [Concomitant]
     Active Substance: COSMETICS
     Indication: ACNE
     Route: 061
     Dates: start: 20181223, end: 20190101

REACTIONS (7)
  - Dry skin [Recovered/Resolved]
  - Inappropriate schedule of product administration [Recovered/Resolved]
  - Skin fissures [Recovered/Resolved]
  - Skin irritation [Recovered/Resolved]
  - Skin burning sensation [Recovered/Resolved]
  - Underdose [Recovered/Resolved]
  - Skin haemorrhage [Recovered/Resolved]

NARRATIVE: CASE EVENT DATE: 20181223
